FAERS Safety Report 24436827 (Version 1)
Quarter: 2024Q4

REPORT INFORMATION
  Report Type: Spontaneous
  Country: US (occurrence: US)
  Receive Date: 20241015
  Receipt Date: 20241015
  Transmission Date: 20250114
  Serious: Yes (Other)
  Sender: SANDOZ
  Company Number: US-SANDOZ-SDZ2024US085832

PATIENT
  Sex: Female
  Weight: 57.61 kg

DRUGS (1)
  1. ESTRADIOL [Suspect]
     Active Substance: ESTRADIOL
     Indication: Product used for unknown indication
     Dosage: 0.04 MG, QW
     Route: 062
     Dates: start: 20240930, end: 20241005

REACTIONS (2)
  - Application site pruritus [Recovering/Resolving]
  - Application site erythema [Recovering/Resolving]
